FAERS Safety Report 13906910 (Version 1)
Quarter: 2017Q3

REPORT INFORMATION
  Report Type: Spontaneous
  Country: JP (occurrence: JP)
  Receive Date: 20170825
  Receipt Date: 20170825
  Transmission Date: 20171127
  Serious: Yes (Death)
  Sender: FDA-Public Use
  Company Number: JP-PFIZER INC-2017364894

PATIENT
  Age: 66 Year
  Sex: Male

DRUGS (2)
  1. BOSENTAN. [Concomitant]
     Active Substance: BOSENTAN
  2. REVATIO [Suspect]
     Active Substance: SILDENAFIL CITRATE
     Indication: PULMONARY HYPERTENSION

REACTIONS (1)
  - Pneumonia [Fatal]
